FAERS Safety Report 7259614-6 (Version None)
Quarter: 2011Q1

REPORT INFORMATION
  Report Type: 
  Country: None (occurrence: None)
  Receive Date: 20110130
  Receipt Date: 20101006
  Transmission Date: 20110831
  Serious: No
  Sender: FDA-Public Use
  Company Number: US-ABBOTT-10P-163-0663773-00

PATIENT
  Age: 59 Year
  Sex: Male

DRUGS (2)
  1. ASACOL [Concomitant]
     Indication: PRODUCT USED FOR UNKNOWN INDICATION
  2. HUMIRA [Suspect]
     Indication: CROHN'S DISEASE
     Dates: start: 20100730

REACTIONS (4)
  - FATIGUE [None]
  - INSOMNIA [None]
  - ASTHENIA [None]
  - HEADACHE [None]
